FAERS Safety Report 6413315-2 (Version None)
Quarter: 2009Q4

REPORT INFORMATION
  Report Type: 
  Country: None (occurrence: None)
  Receive Date: 20091026
  Receipt Date: 20091013
  Transmission Date: 20100525
  Serious: No
  Sender: FDA-Public Use
  Company Number: MX-ROCHE-662638

PATIENT
  Age: 29 Year
  Sex: Female
  Weight: 65 kg

DRUGS (2)
  1. ISOTRETINOIN [Suspect]
     Indication: ACNE
     Dosage: START DATE AND END DATE PROVIDED AS UNKNOWN
     Route: 048
  2. FOLIC ACID [Concomitant]
     Route: 048

REACTIONS (2)
  - NO ADVERSE EVENT [None]
  - PREGNANCY [None]
